FAERS Safety Report 4708793-0 (Version None)
Quarter: 2005Q3

REPORT INFORMATION
  Report Type: 
  Country: None (occurrence: None)
  Receive Date: 20050705
  Receipt Date: 20050621
  Transmission Date: 20060218
  Serious: Yes (Hospitalization, Disabling)
  Sender: FDA-Public Use
  Company Number: 2005092024

PATIENT
  Sex: Female

DRUGS (1)
  1. NITROGLYCERIN [Suspect]
     Indication: ILL-DEFINED DISORDER
     Dosage: SUBLINGUAL
     Route: 060
     Dates: start: 20041101

REACTIONS (6)
  - COMA [None]
  - DIZZINESS POSTURAL [None]
  - FALL [None]
  - HEADACHE [None]
  - HEARING IMPAIRED [None]
  - NONSPECIFIC REACTION [None]
